FAERS Safety Report 18187105 (Version 2)
Quarter: 2020Q3

REPORT INFORMATION
  Report Type: Spontaneous
  Country: DE (occurrence: DE)
  Receive Date: 20200824
  Receipt Date: 20200925
  Transmission Date: 20201103
  Serious: Yes (Other)
  Sender: FDA-Public Use
  Company Number: DE-ALIMERA SCIENCES LIMITED-DE-A16013-20-004281

PATIENT

DRUGS (1)
  1. ILUVIEN [Suspect]
     Active Substance: FLUOCINOLONE ACETONIDE
     Indication: PRODUCT USED FOR UNKNOWN INDICATION
     Dosage: 0.25 MICROGRAM, QD ? UNKNOWN EYE
     Route: 031

REACTIONS (3)
  - Eye operation [Recovered/Resolved]
  - Corneal oedema [Recovered/Resolved]
  - Device dislocation [Recovered/Resolved]
